FAERS Safety Report 7183072-3 (Version None)
Quarter: 2010Q4

REPORT INFORMATION
  Report Type: 
  Country: None (occurrence: None)
  Receive Date: 20101222
  Receipt Date: 20100610
  Transmission Date: 20110411
  Serious: No
  Sender: FDA-Public Use
  Company Number: A0864305A

PATIENT
  Age: 64 Year
  Sex: Female

DRUGS (5)
  1. PROPAFENONE HYDROCHLORIDE [Suspect]
     Dosage: 225MG THREE TIMES PER DAY
     Route: 048
     Dates: start: 20100101
  2. CARDIZEM [Suspect]
     Dates: end: 20100606
  3. ADVAIR [Concomitant]
  4. ATROVENT [Concomitant]
  5. ASPIRIN [Concomitant]

REACTIONS (2)
  - JOINT SWELLING [None]
  - OEDEMA PERIPHERAL [None]
